FAERS Safety Report 4781177-5 (Version None)
Quarter: 2005Q3

REPORT INFORMATION
  Report Type: 
  Country: None (occurrence: None)
  Receive Date: 20050928
  Receipt Date: 20050819
  Transmission Date: 20060218
  Serious: Yes (Other)
  Sender: FDA-Public Use
  Company Number: US-BRISTOL-MYERS SQUIBB COMPANY-13083845

PATIENT
  Age: 59 Year
  Sex: Male
  Weight: 101 kg

DRUGS (2)
  1. TEQUIN [Suspect]
     Indication: CATARACT OPERATION
     Route: 031
  2. COUMADIN [Concomitant]
     Dosage: 5 MG ON SAT, SUN, WED AND THURS, 7.5 MG ON MON TUES AND FRI.
     Route: 048

REACTIONS (2)
  - BLINDNESS UNILATERAL [None]
  - EYE PAIN [None]
